FAERS Safety Report 8292032 (Version 3)
Quarter: 2013Q4

REPORT INFORMATION
  Report Type: Spontaneous
  Country: US (occurrence: US)
  Receive Date: 20111215
  Receipt Date: 20131101
  Transmission Date: 20140711
  Serious: Yes (Other)
  Sender: FDA-Public Use
  Company Number: US-BAYER-2011-116604

PATIENT
  Age: 16 Year
  Sex: Female
  Weight: 45.35 kg

DRUGS (11)
  1. YAZ [Suspect]
     Dosage: UNK
     Dates: start: 200711, end: 20080125
  2. ALBUTEROL [Concomitant]
     Dosage: UNK UNK, PRN
     Route: 055
  3. IBUPROFEN [Concomitant]
     Dosage: UNK UNK, PRN
  4. ALLEGRA [Concomitant]
     Indication: MULTIPLE ALLERGIES
     Dosage: 1 PILL EVERY 12 HOURS
  5. SINGULAIR [Concomitant]
     Indication: ASTHMA
     Dosage: 1 PILL, QD
  6. TRAZODONE [Concomitant]
     Dosage: UNK
     Dates: start: 20091231
  7. PAXEL [Concomitant]
     Dosage: UNK
     Dates: start: 20091231
  8. SEASONIQUE [Concomitant]
  9. ORTHO-NOVUM 7/7/7 [Concomitant]
  10. DEPO-PROVERA [Concomitant]
     Dosage: 80 MG, UNK
  11. ORTHO-NOVUM 1/35 [ETHINYLESTRADIOL,NORETHISTERONE] [Concomitant]

REACTIONS (6)
  - Cholelithiasis [None]
  - Biliary dyskinesia [None]
  - Abdominal pain [None]
  - Nausea [None]
  - Vomiting [None]
  - Biliary dyskinesia [None]
